FAERS Safety Report 5082327-6 (Version None)
Quarter: 2006Q3

REPORT INFORMATION
  Report Type: 
  Country: None (occurrence: None)
  Receive Date: 20060720
  Receipt Date: 20060426
  Transmission Date: 20061208
  Serious: Yes (Hospitalization)
  Sender: FDA-Public Use
  Company Number: 2006058411

PATIENT
  Sex: Male

DRUGS (1)
  1. CELEBREX [Suspect]
     Indication: BACK DISORDER
     Dosage: 1200 MG (400 MG, 3 IN 1 D)
     Dates: start: 19980101

REACTIONS (3)
  - DEPRESSION [None]
  - LOSS OF LIBIDO [None]
  - MYOCARDIAL INFARCTION [None]
